FAERS Safety Report 8450056-4 (Version None)
Quarter: 2012Q2

REPORT INFORMATION
  Report Type: 
  Country: None (occurrence: None)
  Receive Date: 20120614
  Receipt Date: 20120614
  Transmission Date: 20120825
  Serious: No
  Sender: FDA-Public Use
  Company Number: None

PATIENT
  Age: 74 Year
  Sex: Male
  Weight: 122.4712 kg

DRUGS (1)
  1. METOPROLOL TARTRATE [Suspect]
     Indication: ARRHYTHMIA
     Dosage: ONE DAILY PO
     Route: 048
     Dates: start: 20120604, end: 20120609

REACTIONS (3)
  - PRODUCT SUBSTITUTION ISSUE [None]
  - PRODUCT QUALITY ISSUE [None]
  - DIARRHOEA [None]
